FAERS Safety Report 6616776-9 (Version None)
Quarter: 2010Q1

REPORT INFORMATION
  Report Type: 
  Country: None (occurrence: None)
  Receive Date: 20100305
  Receipt Date: 20100226
  Transmission Date: 20100710
  Serious: Yes (Death, Other)
  Sender: FDA-Public Use
  Company Number: DE-PFIZER INC-2009308765

PATIENT
  Age: 79 Year
  Sex: Female

DRUGS (3)
  1. LATANOPROST [Suspect]
     Indication: GLAUCOMA
     Dosage: 0.005 %, 1X/DAY BOTH EYES
     Route: 047
     Dates: start: 20000807, end: 20070103
  2. COSOPT [Concomitant]
     Indication: GLAUCOMA
     Dosage: 1X/DAY BOTH EYES
     Route: 047
     Dates: start: 20030910, end: 20070103
  3. COSOPT [Concomitant]
     Dosage: 2X/DAY BOTH EYES
     Route: 047
     Dates: start: 20001010, end: 20030909

REACTIONS (2)
  - ASTHENIA [None]
  - CEREBROVASCULAR ACCIDENT [None]
